FAERS Safety Report 12432104 (Version 1)
Quarter: 2016Q2

REPORT INFORMATION
  Report Type: Spontaneous
  Country: US (occurrence: None)
  Receive Date: 20160602
  Receipt Date: 20160602
  Transmission Date: 20160815
  Serious: Yes (Hospitalization)
  Sender: FDA-Public Use
  Company Number: None

PATIENT
  Age: 67 Year
  Sex: Male
  Weight: 107.3 kg

DRUGS (1)
  1. TROSPIUM [Suspect]
     Active Substance: TROSPIUM
     Indication: POLLAKIURIA
     Route: 048
     Dates: start: 20140225, end: 20160523

REACTIONS (1)
  - Angioedema [None]

NARRATIVE: CASE EVENT DATE: 20160523
